FAERS Safety Report 23477179 (Version 1)
Quarter: 2024Q1

REPORT INFORMATION
  Report Type: Spontaneous
  Country: CH (occurrence: CH)
  Receive Date: 20240204
  Receipt Date: 20240204
  Transmission Date: 20240410
  Serious: No
  Sender: FDA-Public Use
  Company Number: CH-IPSEN Group, Research and Development-2023-18206

PATIENT
  Age: 69 Year
  Sex: Male

DRUGS (2)
  1. CABOMETYX [Suspect]
     Active Substance: CABOZANTINIB S-MALATE
     Indication: Medullary thyroid cancer
     Dosage: 60 MG
     Route: 048
     Dates: start: 20230601, end: 2023
  2. CABOMETYX [Suspect]
     Active Substance: CABOZANTINIB S-MALATE
     Indication: Thyroid cancer

REACTIONS (2)
  - Radiotherapy to brain [Unknown]
  - Off label use [Unknown]

NARRATIVE: CASE EVENT DATE: 20230601
